FAERS Safety Report 5002801-8 (Version None)
Quarter: 2006Q2

REPORT INFORMATION
  Report Type: 
  Country: None (occurrence: None)
  Receive Date: 20060512
  Receipt Date: 20060428
  Transmission Date: 20061013
  Serious: Yes (Death)
  Sender: FDA-Public Use
  Company Number: MC200600163

PATIENT
  Age: 74 Year
  Sex: Male
  Weight: 90 kg

DRUGS (6)
  1. ANGIOX(BIVALIRUDIN) ANGIOMAX (BIVALIRUDIN) INJECTION [Suspect]
     Dates: start: 20060208, end: 20060208
  2. ASPIRIN [Concomitant]
  3. PLAVIX [Concomitant]
  4. DOXAZOSIN (DOXAZOSIN) [Concomitant]
  5. VERAPAMIL - SLOW RELEASE (VERAPAMIL HYDROCHLORIDE) [Concomitant]
  6. ROBUVASTATIN [Concomitant]

REACTIONS (3)
  - CARDIAC FAILURE [None]
  - CARDIOGENIC SHOCK [None]
  - POST PROCEDURAL COMPLICATION [None]
